FAERS Safety Report 9000239 (Version 1)
Quarter: 2013Q1

REPORT INFORMATION
  Report Type: Spontaneous
  Country: CA (occurrence: CA)
  Receive Date: 20130106
  Receipt Date: 20130106
  Transmission Date: 20140127
  Serious: Yes (Other)
  Sender: FDA-Public Use
  Company Number: CA-TEVA-378948USA

PATIENT
  Age: 78 Year
  Sex: Female
  Weight: 90.35 kg

DRUGS (7)
  1. FUROSEMIDE [Suspect]
     Dosage: 80 MILLIGRAM DAILY;
     Route: 048
  2. ADALAT XL [Concomitant]
     Route: 048
  3. ATORVASTATIN CALCIUM [Concomitant]
     Route: 048
  4. METOPROLOL [Concomitant]
     Route: 048
  5. NITRO-DUR [Concomitant]
     Dosage: 0.4 0.4MG/HOUR (RATED RELEASE IN VIVO)
     Route: 062
  6. NITROGLYCERIN [Concomitant]
  7. OXEZE [Concomitant]
     Dosage: 6 MCG/AEM METERED-DOSE (AEROSOL)
     Route: 048

REACTIONS (4)
  - Pain [Recovered/Resolved]
  - Weight increased [Recovered/Resolved]
  - Product substitution issue [Recovered/Resolved]
  - Tinnitus [Recovered/Resolved]
